FAERS Safety Report 7064095-1 (Version None)
Quarter: 2010Q4

REPORT INFORMATION
  Report Type: 
  Country: None (occurrence: None)
  Receive Date: 20101027
  Receipt Date: 20101021
  Transmission Date: 20110411
  Serious: Yes (Life-Threatening, Hospitalization, Other)
  Sender: FDA-Public Use
  Company Number: US-ELI_LILLY_AND_COMPANY-US201010000037

PATIENT
  Sex: Female

DRUGS (6)
  1. HUMULIN R [Suspect]
     Indication: DIABETES MELLITUS
     Dosage: UNK, AS NEEDED
  2. HUMULIN R [Suspect]
     Dosage: UNK, AS NEEDED
  3. LEVEMIR [Concomitant]
  4. LANTUS [Concomitant]
     Dosage: UNK, UNK
  5. PLAVIX [Concomitant]
  6. PREDNISONE [Concomitant]
     Dosage: UNK, DAILY (1/D)
     Dates: start: 20020502

REACTIONS (8)
  - BLOOD GLUCOSE INCREASED [None]
  - BRONCHITIS [None]
  - GLYCOSYLATED HAEMOGLOBIN INCREASED [None]
  - INTENTIONAL DRUG MISUSE [None]
  - MACULAR DEGENERATION [None]
  - MYOCARDIAL INFARCTION [None]
  - STRESS [None]
  - VISUAL IMPAIRMENT [None]
